FAERS Safety Report 25082105 (Version 1)
Quarter: 2025Q1

REPORT INFORMATION
  Report Type: Spontaneous
  Country: US (occurrence: US)
  Receive Date: 20250317
  Receipt Date: 20250317
  Transmission Date: 20250408
  Serious: No
  Sender: ROCHE
  Company Number: US-ROCHE-10000227480

PATIENT
  Sex: Female

DRUGS (15)
  1. XOLAIR PFS [Suspect]
     Active Substance: OMALIZUMAB
     Indication: Asthma
     Route: 058
  2. XOLAIR PFS [Suspect]
     Active Substance: OMALIZUMAB
  3. BREYNA AER 160-4.5MCG/ACT [Concomitant]
  4. BUDESONIDE-F [Concomitant]
  5. ASTEPRO SOL 205.5MCG/SPRA [Concomitant]
  6. BIOTIN [Concomitant]
     Active Substance: BIOTIN
  7. CALCIUM [Concomitant]
     Active Substance: CALCIUM
  8. GLUCOSAMINE [Concomitant]
     Active Substance: GLUCOSAMINE
  9. VITAMINS [Concomitant]
     Active Substance: VITAMINS
  10. SPIRIVA HAND CAP 18MCG [Concomitant]
  11. SYMBICORT [Concomitant]
     Active Substance: BUDESONIDE\FORMOTEROL FUMARATE DIHYDRATE
  12. TRIAMCINOLON [Concomitant]
  13. VITAMIN B12 [Concomitant]
     Active Substance: CYANOCOBALAMIN
  14. VITAMIN D3 [Concomitant]
     Active Substance: CHOLECALCIFEROL
  15. XYZAL ALLERG [Concomitant]

REACTIONS (2)
  - Intentional product misuse [Unknown]
  - No adverse event [Unknown]
